FAERS Safety Report 8288577-X (Version None)
Quarter: 2012Q2

REPORT INFORMATION
  Report Type: 
  Country: None (occurrence: None)
  Receive Date: 20120416
  Receipt Date: 20120412
  Transmission Date: 20120825
  Serious: Yes (Hospitalization, Disabling)
  Sender: FDA-Public Use
  Company Number: US-MERCK-1110USA02437

PATIENT
  Age: 53 Year
  Sex: Female

DRUGS (7)
  1. MULTI-VITAMINS [Concomitant]
     Route: 065
     Dates: start: 19800101
  2. FOSAMAX [Suspect]
     Indication: OSTEOPOROSIS
     Route: 048
     Dates: start: 20010101, end: 20090101
  3. OMEGA-3 MARINE TRIGLYCERIDES [Concomitant]
     Route: 065
     Dates: start: 20000101
  4. FORTEO [Concomitant]
     Route: 065
  5. FOSAMAX [Suspect]
     Indication: OSTEOPOROSIS PROPHYLAXIS
     Route: 048
  6. FOSAMAX [Suspect]
     Route: 048
  7. VITAMIN D (UNSPECIFIED) [Concomitant]
     Route: 065
     Dates: start: 20070101

REACTIONS (7)
  - FOOT FRACTURE [None]
  - ADVERSE EVENT [None]
  - HAND FRACTURE [None]
  - LOW TURNOVER OSTEOPATHY [None]
  - FEMUR FRACTURE [None]
  - VITAMIN D DEFICIENCY [None]
  - HYPERTENSION [None]
